FAERS Safety Report 6145980-1 (Version None)
Quarter: 2009Q2

REPORT INFORMATION
  Report Type: 
  Country: None (occurrence: None)
  Receive Date: 20090406
  Receipt Date: 20090406
  Transmission Date: 20091009
  Serious: Yes (Other)
  Sender: FDA-Public Use
  Company Number: None

PATIENT
  Age: 57 Year
  Sex: Male
  Weight: 103.4201 kg

DRUGS (7)
  1. CYMBALTA [Suspect]
     Indication: PANIC DISORDER
     Dosage: 30 MG DAILY PO
     Route: 048
     Dates: start: 20090401
  2. CYMBALTA [Suspect]
     Indication: PANIC DISORDER
     Dosage: 30 MG DAILY PO
     Route: 048
     Dates: start: 20090402
  3. LOPRESSOR [Concomitant]
  4. KLONOPIN [Concomitant]
  5. VYTORIN [Concomitant]
  6. LISINOPRIL [Concomitant]
  7. HYDROCHLOROTHIAZIDE [Concomitant]

REACTIONS (4)
  - ERYTHEMA [None]
  - RASH MACULAR [None]
  - RASH VESICULAR [None]
  - SKIN LESION [None]
